FAERS Safety Report 15752087 (Version 1)
Quarter: 2018Q4

REPORT INFORMATION
  Report Type: Spontaneous
  Country: DE (occurrence: DE)
  Receive Date: 20181221
  Receipt Date: 20181221
  Transmission Date: 20190205
  Serious: Yes (Other)
  Sender: FDA-Public Use
  Company Number: DE-ALEXION PHARMACEUTICALS INC.-A201815533

PATIENT
  Sex: Female
  Weight: 59 kg

DRUGS (4)
  1. SOLIRIS [Suspect]
     Active Substance: ECULIZUMAB
     Indication: OFF LABEL USE
     Dosage: UNK
     Route: 065
  2. SOLIRIS [Suspect]
     Active Substance: ECULIZUMAB
     Dosage: UNK, Q2W -EVERY 14 DAYS
     Route: 065
  3. SOLIRIS [Suspect]
     Active Substance: ECULIZUMAB
     Indication: PRODUCT USED FOR UNKNOWN INDICATION
     Dosage: UNK, QW
     Route: 065
     Dates: start: 201511
  4. SOLIRIS [Suspect]
     Active Substance: ECULIZUMAB
     Dosage: 1200 MG, Q2W - EVERY 14 DAYS
     Route: 065

REACTIONS (16)
  - Blood creatinine increased [Unknown]
  - Blood uric acid increased [Unknown]
  - White blood cells urine positive [Unknown]
  - Pneumocystis jirovecii pneumonia [Unknown]
  - Herpes zoster [Unknown]
  - Proteinuria [Unknown]
  - Blood calcium decreased [Unknown]
  - Escherichia urinary tract infection [Unknown]
  - Off label use [Unknown]
  - Glomerular filtration rate decreased [Unknown]
  - Leukopenia [Unknown]
  - Renal impairment [Not Recovered/Not Resolved]
  - Urinary sediment abnormal [Unknown]
  - Cytomegalovirus test positive [Unknown]
  - Blood urea increased [Unknown]
  - Red blood cells urine positive [Unknown]

NARRATIVE: CASE EVENT DATE: 201608
